FAERS Safety Report 9254963 (Version 2)
Quarter: 2013Q2

REPORT INFORMATION
  Report Type: Spontaneous
  Country: GB (occurrence: GB)
  Receive Date: 20130425
  Receipt Date: 20130502
  Transmission Date: 20140414
  Serious: Yes (Other)
  Sender: FDA-Public Use
  Company Number: GB-PFIZER INC-2013127953

PATIENT
  Age: 41 Year
  Sex: Male

DRUGS (2)
  1. GABAPENTIN [Suspect]
     Indication: NEURALGIA
     Dosage: INCREASING DOSE UP TO 300 MG TWICE DAILY
     Route: 048
     Dates: start: 20130121
  2. PHENOXYMETHYLPENICILLIN [Concomitant]

REACTIONS (2)
  - Rash [Not Recovered/Not Resolved]
  - Pain [Unknown]
